FAERS Safety Report 7407508-5 (Version None)
Quarter: 2011Q2

REPORT INFORMATION
  Report Type: 
  Country: None (occurrence: None)
  Receive Date: 20110412
  Receipt Date: 20110330
  Transmission Date: 20111010
  Serious: No
  Sender: FDA-Public Use
  Company Number: DE-BIOGENIDEC-2011BI008704

PATIENT
  Age: 44 Year
  Sex: Female
  Weight: 56 kg

DRUGS (3)
  1. TYSABRI [Suspect]
     Indication: MULTIPLE SCLEROSIS
     Route: 042
     Dates: start: 20080714, end: 20101001
  2. GABAX [Concomitant]
     Dates: start: 20100807
  3. GABAX [Concomitant]
     Indication: NEURALGIA
     Dates: start: 20100603, end: 20100806

REACTIONS (5)
  - LEUKOCYTOSIS [None]
  - APATHY [None]
  - FATIGUE [None]
  - NEURALGIA [None]
  - DEPRESSED MOOD [None]
